FAERS Safety Report 14431475 (Version 1)
Quarter: 2018Q1

REPORT INFORMATION
  Report Type: Spontaneous
  Country: US (occurrence: US)
  Receive Date: 20180124
  Receipt Date: 20180124
  Transmission Date: 20180509
  Serious: No
  Sender: FDA-Public Use
  Company Number: US-BIOGEN-2017BI00504138

PATIENT
  Age: 15 Year
  Sex: Female

DRUGS (1)
  1. TECFIDERA [Suspect]
     Active Substance: DIMETHYL FUMARATE
     Indication: MULTIPLE SCLEROSIS
     Dosage: MAINTENANCE DOSE
     Route: 048
     Dates: start: 201711

REACTIONS (3)
  - Drug administered to patient of inappropriate age [Unknown]
  - Dyspepsia [Unknown]
  - Flushing [Unknown]

NARRATIVE: CASE EVENT DATE: 201711
